FAERS Safety Report 10395615 (Version 1)
Quarter: 2014Q1

REPORT INFORMATION
  Report Type: Spontaneous
  Country: US (occurrence: None)
  Receive Date: 20130705
  Receipt Date: 20130705
  Transmission Date: 20141002
  Serious: Yes (Hospitalization, Other)
  Sender: FDA-Public Use
  Company Number: RB-34950-2011

PATIENT
  Sex: Male

DRUGS (2)
  1. SUBOXONE [Suspect]
     Indication: PRODUCT USED FOR UNKNOWN INDICATION
     Dosage: (SUBOXONE FILM; DOSING DETAILS UNKNOWN)
     Dates: start: 201111, end: 201111
  2. HEROIN (NONE) [Suspect]
     Indication: PRODUCT USED FOR UNKNOWN INDICATION
     Dosage: DOSING DETAILS UNKNOWN
     Dates: start: 201111

REACTIONS (7)
  - Off label use [None]
  - Drug abuse [None]
  - Respiratory depression [None]
  - Cough [None]
  - Insomnia [None]
  - Dyspnoea [None]
  - Feeling abnormal [None]
